FAERS Safety Report 13141446 (Version 1)
Quarter: 2017Q1

REPORT INFORMATION
  Report Type: Spontaneous
  Country: US (occurrence: US)
  Receive Date: 20170123
  Receipt Date: 20170123
  Transmission Date: 20170428
  Serious: No
  Sender: FDA-Public Use
  Company Number: None

PATIENT
  Age: 48 Year
  Sex: Male
  Weight: 104.4 kg

DRUGS (15)
  1. CETIRIZINE [Concomitant]
     Active Substance: CETIRIZINE HYDROCHLORIDE
  2. VITAMIN E [Concomitant]
     Active Substance: .ALPHA.-TOCOPHEROL
  3. VITAMIN D [Concomitant]
     Active Substance: CHOLECALCIFEROL
  4. RED YEAST RICE [Suspect]
     Active Substance: DIETARY SUPPLEMENT
  5. LOTREL [Concomitant]
     Active Substance: AMLODIPINE BESYLATE\BENAZEPRIL HYDROCHLORIDE
  6. BYSTOLIC [Concomitant]
     Active Substance: NEBIVOLOL HYDROCHLORIDE
  7. CENTRUM [Concomitant]
     Active Substance: VITAMINS
  8. MAG OXIDE [Concomitant]
     Active Substance: MAGNESIUM OXIDE
  9. TRAMADOL. [Concomitant]
     Active Substance: TRAMADOL
  10. TESTOSTERONE CYPIONATE 2000MG/ML SUN PHARMACEUTICAL INDUSTRIES [Suspect]
     Active Substance: TESTOSTERONE CYPIONATE
     Indication: BLOOD TESTOSTERONE DECREASED
     Dosage: ?          QUANTITY:1.5 ML;OTHER FREQUENCY:EVERY 2 WEEKS;?
     Route: 030
     Dates: start: 20170106, end: 20170120
  11. PANTOPRAZOLE [Concomitant]
     Active Substance: PANTOPRAZOLE SODIUM
  12. VITAMIN C [Concomitant]
     Active Substance: ASCORBIC ACID
  13. ZINC. [Concomitant]
     Active Substance: ZINC
  14. MELOXICAM. [Concomitant]
     Active Substance: MELOXICAM
  15. FISH OIL [Concomitant]
     Active Substance: FISH OIL

REACTIONS (1)
  - Product physical issue [None]

NARRATIVE: CASE EVENT DATE: 20170120
